FAERS Safety Report 11709972 (Version 2)
Quarter: 2015Q4

REPORT INFORMATION
  Report Type: Spontaneous
  Country: US (occurrence: US)
  Receive Date: 20151104
  Receipt Date: 20151110
  Transmission Date: 20160304
  Serious: No
  Sender: FDA-Public Use
  Company Number: US-ELI_LILLY_AND_COMPANY-US201106002025

PATIENT
  Age: 57 Year
  Sex: Female
  Weight: 84.8 kg

DRUGS (4)
  1. MULTIVITAMINS [Concomitant]
     Active Substance: VITAMINS
  2. FORTEO [Suspect]
     Active Substance: TERIPARATIDE
     Dosage: 20 UG, QD
     Dates: end: 20110705
  3. FORTEO [Suspect]
     Active Substance: TERIPARATIDE
     Indication: OSTEOPOROSIS
     Dosage: 20 UG, QD
     Dates: start: 20110525
  4. FORTEO [Suspect]
     Active Substance: TERIPARATIDE
     Dosage: 20 UG, QD

REACTIONS (17)
  - Dizziness [Recovered/Resolved]
  - Incoherent [Unknown]
  - Dry mouth [Unknown]
  - Pain in extremity [Recovered/Resolved]
  - White blood cell count decreased [Not Recovered/Not Resolved]
  - Listless [Unknown]
  - Restlessness [Recovered/Resolved]
  - Fatigue [Unknown]
  - Limb discomfort [Unknown]
  - Asthenia [Unknown]
  - Insomnia [Recovered/Resolved]
  - Flank pain [Unknown]
  - Pharyngeal mass [Unknown]
  - Nephrolithiasis [Recovered/Resolved]
  - Constipation [Unknown]
  - Nausea [Not Recovered/Not Resolved]
  - Muscle spasms [Recovered/Resolved]

NARRATIVE: CASE EVENT DATE: 201105
